FAERS Safety Report 16984201 (Version 1)
Quarter: 2019Q4

REPORT INFORMATION
  Report Type: Spontaneous
  Country: US (occurrence: US)
  Receive Date: 20191101
  Receipt Date: 20191101
  Transmission Date: 20200122
  Serious: No
  Sender: FDA-Public Use
  Company Number: US-FARMAPROD-201904-0572

PATIENT
  Sex: Female

DRUGS (3)
  1. OXERVATE [Suspect]
     Active Substance: CENEGERMIN-BKBJ
     Indication: NEUROTROPHIC KERATOPATHY
     Route: 047
     Dates: start: 2019
  2. OXERVATE [Suspect]
     Active Substance: CENEGERMIN-BKBJ
     Route: 047
     Dates: start: 20190626
  3. MOXIFLOXACIN. [Interacting]
     Active Substance: MOXIFLOXACIN
     Indication: PRODUCT USED FOR UNKNOWN INDICATION

REACTIONS (12)
  - Disease progression [Not Recovered/Not Resolved]
  - Rash [Unknown]
  - Headache [Recovered/Resolved]
  - Eye swelling [Unknown]
  - Paraesthesia oral [Unknown]
  - Back pain [Recovered/Resolved]
  - Lip swelling [Unknown]
  - Vision blurred [Unknown]
  - Drug interaction [Unknown]
  - Eye pain [Not Recovered/Not Resolved]
  - Burning sensation [Recovered/Resolved]
  - Nausea [Unknown]
